FAERS Safety Report 9159709 (Version 1)
Quarter: 2013Q1

REPORT INFORMATION
  Report Type: Spontaneous
  Country: DK (occurrence: None)
  Receive Date: 20130214
  Receipt Date: 20130214
  Transmission Date: 20140127
  Serious: Yes (Other)
  Sender: FDA-Public Use
  Company Number: 2013MA001089

PATIENT
  Age: 41 Year
  Sex: Female

DRUGS (4)
  1. DIAZEPAM [Suspect]
     Indication: FEELING OF RELAXATION
  2. LEVETIRACETAM [Suspect]
     Indication: CEREBRAL THROMBOSIS
     Dosage: 3 TAB; QD
  3. BUTALBITAL, ASPIRIN AND CAFFEINE [Suspect]
     Indication: PRODUCT USED FOR UNKNOWN INDICATION
  4. LEVOTHYROXINE SODIUM [Suspect]
     Indication: HYPOTHYROIDISM

REACTIONS (11)
  - Palpitations [None]
  - Abdominal discomfort [None]
  - Hyperhidrosis [None]
  - Abdominal pain upper [None]
  - Malaise [None]
  - Vomiting [None]
  - Diarrhoea [None]
  - Insomnia [None]
  - Weight decreased [None]
  - Drug interaction [None]
  - Hallucination, visual [None]
